FAERS Safety Report 6711446-0 (Version None)
Quarter: 2010Q2

REPORT INFORMATION
  Report Type: 
  Country: None (occurrence: None)
  Receive Date: 20100505
  Receipt Date: 20100427
  Transmission Date: 20101027
  Serious: Yes (Other)
  Sender: FDA-Public Use
  Company Number: US-PFIZER INC-2010053123

PATIENT
  Sex: Male

DRUGS (1)
  1. LOPID [Suspect]

REACTIONS (1)
  - MUSCLE SPASMS [None]
